FAERS Safety Report 21794504 (Version 1)
Quarter: 2022Q4

REPORT INFORMATION
  Report Type: Report from Study
  Country: US (occurrence: US)
  Receive Date: 20221229
  Receipt Date: 20221229
  Transmission Date: 20230112
  Serious: Yes (Other)
  Sender: FDA-Public Use
  Company Number: US-ABBVIE-22K-163-4467675-00

PATIENT
  Age: 51 Year
  Sex: Female

DRUGS (3)
  1. HUMIRA [Suspect]
     Active Substance: ADALIMUMAB
     Indication: Rheumatoid arthritis
     Dosage: THERAPY END DATE SHOULD BE 2019
     Route: 058
  2. HUMIRA [Suspect]
     Active Substance: ADALIMUMAB
  3. ORUVAIL [Suspect]
     Active Substance: KETOPROFEN
     Indication: Product used for unknown indication
     Route: 065

REACTIONS (8)
  - Hip surgery [Unknown]
  - Hip surgery [Unknown]
  - Rheumatoid arthritis [Recovering/Resolving]
  - Stomatitis [Unknown]
  - Dysphonia [Unknown]
  - Wound [Unknown]
  - Onychomycosis [Unknown]
  - Hip surgery [Unknown]

NARRATIVE: CASE EVENT DATE: 20190109
